FAERS Safety Report 4521266-3 (Version None)
Quarter: 2004Q4

REPORT INFORMATION
  Report Type: 
  Country: None (occurrence: None)
  Receive Date: 20041208
  Receipt Date: 20041129
  Transmission Date: 20050328
  Serious: Yes (Other)
  Sender: FDA-Public Use
  Company Number: US-GLAXOSMITHKLINE-A0535379A

PATIENT

DRUGS (1)
  1. LAMICTAL [Suspect]
     Indication: FIBROMYALGIA
     Route: 048

REACTIONS (2)
  - CARDIAC ARREST [None]
  - CARDIAC PACEMAKER INSERTION [None]
